FAERS Safety Report 17558447 (Version 4)
Quarter: 2020Q2

REPORT INFORMATION
  Report Type: Spontaneous
  Country: JP (occurrence: JP)
  Receive Date: 20200318
  Receipt Date: 20200403
  Transmission Date: 20200713
  Serious: Yes (Death, Hospitalization, Other)
  Sender: FDA-Public Use
  Company Number: JP-PFIZER INC-2019549148

PATIENT
  Age: 75 Year
  Sex: Male

DRUGS (3)
  1. FULVESTRANT. [Concomitant]
     Active Substance: FULVESTRANT
     Indication: BREAST CANCER RECURRENT
     Dosage: 500 MG, CYCLIC (500 MG, DAILY FOR ONCE EVERY 4 WEEKS)
     Route: 030
     Dates: start: 201902, end: 20191212
  2. FASLODEX [Concomitant]
     Active Substance: FULVESTRANT
     Indication: BREAST CANCER METASTATIC
     Dosage: 500 MG, 1X/DAY
     Route: 030
     Dates: start: 20170309, end: 20191121
  3. IBRANCE [Suspect]
     Active Substance: PALBOCICLIB
     Indication: BREAST CANCER RECURRENT
     Dosage: 125 MG, CYCLIC (DAILY FOR 3 WEEKS ON AND 1 WEEK OFF)
     Route: 048
     Dates: start: 20181115, end: 20191202

REACTIONS (7)
  - Surfactant protein increased [Unknown]
  - Hyperglycaemia [Unknown]
  - Haemoptysis [Fatal]
  - PO2 abnormal [Unknown]
  - Dyspnoea [Recovering/Resolving]
  - Interstitial lung disease [Recovering/Resolving]
  - Cell marker increased [Unknown]

NARRATIVE: CASE EVENT DATE: 20191202
